FAERS Safety Report 11828168 (Version 2)
Quarter: 2015Q4

REPORT INFORMATION
  Report Type: Spontaneous
  Country: FR (occurrence: FR)
  Receive Date: 20151211
  Receipt Date: 20151222
  Transmission Date: 20160305
  Serious: Yes (Other)
  Sender: FDA-Public Use
  Company Number: FR-LUNDBECK-DKLU2007675

PATIENT
  Age: 22 Year
  Sex: Female

DRUGS (4)
  1. URBANYL [Suspect]
     Active Substance: CLOBAZAM
     Indication: EPILEPSY
     Route: 065
  2. NEURONTIN [Suspect]
     Active Substance: GABAPENTIN
     Indication: EPILEPSY
     Route: 065
  3. VALIUM [Suspect]
     Active Substance: DIAZEPAM
     Indication: EPILEPSY
     Route: 065
  4. DEPAKINE [Suspect]
     Active Substance: VALPROATE SODIUM
     Indication: EPILEPSY
     Dosage: UPPER THAN 1500 MG DAILY
     Route: 048
     Dates: start: 1997

REACTIONS (3)
  - Pregnancy [Unknown]
  - Toxoplasmosis [Unknown]
  - Staphylococcal infection [Unknown]

NARRATIVE: CASE EVENT DATE: 2004
